FAERS Safety Report 5241256-5 (Version None)
Quarter: 2007Q1

REPORT INFORMATION
  Report Type: 
  Country: None (occurrence: None)
  Receive Date: 20070215
  Receipt Date: 20070215
  Transmission Date: 20070707
  Serious: Yes (Hospitalization)
  Sender: FDA-Public Use
  Company Number: None

PATIENT
  Age: 77 Year
  Sex: Male

DRUGS (6)
  1. MEPERIDINE HCL [Suspect]
     Indication: PAIN
     Dosage: ONCE
  2. LORAZEPAM [Suspect]
     Indication: ANXIETY
     Dosage: ONCE
  3. TERAZOSIN HCL [Concomitant]
  4. FINASTERIDE [Concomitant]
  5. FERROUS SUL TAB [Concomitant]
  6. OMEPRAZOLE [Concomitant]

REACTIONS (2)
  - BRADYCARDIA [None]
  - SYNCOPE [None]
